FAERS Safety Report 24379086 (Version 2)
Quarter: 2024Q4

REPORT INFORMATION
  Report Type: Spontaneous
  Country: US (occurrence: US)
  Receive Date: 20240930
  Receipt Date: 20241002
  Transmission Date: 20250115
  Serious: Yes (Other)
  Sender: PFIZER
  Company Number: US-PFIZER INC-PV202400125751

PATIENT
  Age: 70 Year
  Sex: Female

DRUGS (3)
  1. LEVETIRACETAM [Interacting]
     Active Substance: LEVETIRACETAM
     Indication: Seizure
     Dosage: UNK
  2. APIXABAN [Interacting]
     Active Substance: APIXABAN
     Indication: Embolism venous
     Dosage: 5 MG, 2X/DAY
     Dates: start: 2005
  3. WARFARIN [Suspect]
     Active Substance: WARFARIN
     Dosage: UNK

REACTIONS (2)
  - Drug level increased [Unknown]
  - Drug interaction [Unknown]
